FAERS Safety Report 11426812 (Version 1)
Quarter: 2015Q3

REPORT INFORMATION
  Report Type: Spontaneous
  Country: US (occurrence: US)
  Receive Date: 20150821
  Receipt Date: 20150821
  Transmission Date: 20151125
  Serious: No
  Sender: FDA-Public Use
  Company Number: US-ELI_LILLY_AND_COMPANY-US201308001123

PATIENT
  Sex: Male

DRUGS (4)
  1. ADCIRCA [Suspect]
     Active Substance: TADALAFIL
     Indication: PULMONARY ARTERIAL HYPERTENSION
     Dosage: 40 MG, EACH MORNING
  2. ZOCOR [Concomitant]
     Active Substance: SIMVASTATIN
  3. TENORMIN [Concomitant]
     Active Substance: ATENOLOL
  4. ADCIRCA [Suspect]
     Active Substance: TADALAFIL
     Dosage: 40 MG, EACH EVENING

REACTIONS (3)
  - Cough [Not Recovered/Not Resolved]
  - Dysphonia [Not Recovered/Not Resolved]
  - Nausea [Recovered/Resolved]
